FAERS Safety Report 21511106 (Version 1)
Quarter: 2022Q4

REPORT INFORMATION
  Report Type: Report from Study
  Country: US (occurrence: US)
  Receive Date: 20221027
  Receipt Date: 20221027
  Transmission Date: 20230112
  Serious: No
  Sender: FDA-Public Use
  Company Number: US-ABBVIE-4158664

PATIENT
  Sex: Male

DRUGS (1)
  1. IMBRUVICA [Suspect]
     Active Substance: IBRUTINIB
     Indication: Chronic lymphocytic leukaemia
     Route: 048
     Dates: start: 202209

REACTIONS (7)
  - Back pain [Unknown]
  - Nausea [Unknown]
  - Impaired work ability [Unknown]
  - Dizziness [Unknown]
  - Drug ineffective [Unknown]
  - Neck mass [Not Recovered/Not Resolved]
  - Malaise [Unknown]
